FAERS Safety Report 7031857-6 (Version None)
Quarter: 2010Q4

REPORT INFORMATION
  Report Type: 
  Country: None (occurrence: None)
  Receive Date: 20101007
  Receipt Date: 20100922
  Transmission Date: 20110411
  Serious: No
  Sender: FDA-Public Use
  Company Number: US-BIOGENIDEC-2010BI034224

PATIENT
  Sex: Female

DRUGS (10)
  1. TYSABRI [Suspect]
     Indication: MULTIPLE SCLEROSIS
     Route: 042
     Dates: start: 20100113
  2. METFORMIN [Concomitant]
  3. ACTOS [Concomitant]
  4. GLYBURIDE [Concomitant]
  5. DILTIAZEM [Concomitant]
  6. BISOPROLOL [Concomitant]
  7. BISOPROLOL [Concomitant]
  8. LIPITOR [Concomitant]
  9. HYDROCODONE [Concomitant]
  10. SYMBICOURT [Concomitant]

REACTIONS (7)
  - CONTUSION [None]
  - DIARRHOEA [None]
  - FALL [None]
  - INFLUENZA [None]
  - NAUSEA [None]
  - PAIN [None]
  - URINARY TRACT INFECTION [None]
